FAERS Safety Report 25916842 (Version 1)
Quarter: 2025Q4

REPORT INFORMATION
  Report Type: Report from Study
  Country: CA (occurrence: CA)
  Receive Date: 20251014
  Receipt Date: 20251014
  Transmission Date: 20260118
  Serious: Yes (Other)
  Sender: CELLTRION
  Company Number: CA-CELLTRION INC.-2024CA032898

PATIENT

DRUGS (1)
  1. INFLIXIMAB-DYYB [Suspect]
     Active Substance: INFLIXIMAB-DYYB
     Indication: Crohn^s disease
     Dosage: 120 MG, Q2W / 120 MILLIGRAM, 1 EVERY 2 WEEKS
     Route: 058
     Dates: start: 20241220, end: 2025

REACTIONS (2)
  - Crohn^s disease [Unknown]
  - Injection site pain [Unknown]
